FAERS Safety Report 19944825 (Version 1)
Quarter: 2021Q4

REPORT INFORMATION
  Report Type: Spontaneous
  Country: ES (occurrence: ES)
  Receive Date: 20211012
  Receipt Date: 20211012
  Transmission Date: 20220303
  Serious: Yes (Other)
  Sender: FDA-Public Use
  Company Number: None

PATIENT
  Age: 16 Year
  Sex: Male
  Weight: 58 kg

DRUGS (9)
  1. ETOPOSIDE [Suspect]
     Active Substance: ETOPOSIDE
     Indication: Lung neoplasm malignant
     Dosage: 175 MG 5 DAYS EVERY 2 WEEKS, 20 MG / ML CONCENTRATE FOR SOLUTION FOR INFUSION EFG, 1?VIAL OF 10 ML
     Route: 041
     Dates: start: 20210812
  2. VORICONAZOLE [Suspect]
     Active Substance: VORICONAZOLE
     Indication: Bronchopulmonary aspergillosis
     Dosage: 300 MG EVERY 12 H, 200 MG, 28 TABLETS
     Route: 048
     Dates: start: 20210827, end: 20210923
  3. IFOSFAMIDE [Suspect]
     Active Substance: IFOSFAMIDE
     Indication: Lung neoplasm malignant
     Dosage: 3120 MG 5 DAYS EVERY 2 WEEKS,  G INJECTION, 1 VIAL
     Route: 041
     Dates: start: 20210812
  4. CALCIFEDIOL [Concomitant]
     Active Substance: CALCIFEDIOL
     Dosage: 0.266 MG ORAL SOLUTION, 10 DRINKABLE AMPOULES OF 1.5 ML
  5. HYDROCORTISONE [Concomitant]
     Active Substance: HYDROCORTISONE
     Dosage: 20 MG 30 TABLETS
  6. Mst [Concomitant]
     Dosage: CONTINUS, 60 TABLETS
  7. OMEPRAZOLE [Concomitant]
     Active Substance: OMEPRAZOLE
     Dosage: 28 CAPSULES
  8. SYMBICORT [Concomitant]
     Active Substance: BUDESONIDE\FORMOTEROL FUMARATE DIHYDRATE
     Dosage: 160 MICROGRAMS / 4.5 MICROGRAMS / INHALATION SUSPENSION
  9. ZOFRAN [Concomitant]
     Active Substance: ONDANSETRON HYDROCHLORIDE
     Dosage: 15 TABLETS

REACTIONS (3)
  - Muscle rigidity [Recovered/Resolved]
  - Clonic convulsion [Recovered/Resolved]
  - Loss of consciousness [Recovered/Resolved]

NARRATIVE: CASE EVENT DATE: 20210922
